FAERS Safety Report 5324719-3 (Version None)
Quarter: 2007Q2

REPORT INFORMATION
  Report Type: 
  Country: None (occurrence: None)
  Receive Date: 20070515
  Receipt Date: 20070510
  Transmission Date: 20071010
  Serious: Yes (Other)
  Sender: FDA-Public Use
  Company Number: JP-SP-2007-01704

PATIENT
  Age: 59 Year
  Sex: Male

DRUGS (2)
  1. IMMUCYST [Suspect]
     Indication: BLADDER CANCER
     Route: 043
     Dates: start: 20060821, end: 20061121
  2. IMMUCYST [Suspect]
     Route: 043
     Dates: start: 20060821, end: 20061121

REACTIONS (2)
  - DYSURIA [None]
  - PYREXIA [None]
